FAERS Safety Report 6996158-0 (Version None)
Quarter: 2010Q3

REPORT INFORMATION
  Report Type: 
  Country: None (occurrence: None)
  Receive Date: 20100918
  Receipt Date: 20081217
  Transmission Date: 20110219
  Serious: No
  Sender: FDA-Public Use
  Company Number: US-WYE-H07356808

PATIENT
  Sex: Male

DRUGS (1)
  1. EFFEXOR XR [Suspect]
     Dosage: 150 MG, UNSPECIFIED FREQUENCY

REACTIONS (3)
  - DRUG WITHDRAWAL SYNDROME [None]
  - FEELING JITTERY [None]
  - INSOMNIA [None]
